FAERS Safety Report 9016468 (Version 1)
Quarter: 2013Q1

REPORT INFORMATION
  Report Type: Spontaneous
  Country: US (occurrence: US)
  Receive Date: 20130116
  Receipt Date: 20130116
  Transmission Date: 20140127
  Serious: Yes (Death, Other)
  Sender: FDA-Public Use
  Company Number: US-UCBSA-074862

PATIENT
  Age: 45 Year
  Sex: Female

DRUGS (12)
  1. HYDROXYZINE [Suspect]
     Route: 048
  2. ACETAMINOPHEN\HYDROCODONE [Suspect]
     Route: 048
  3. ALPRAZOLAM [Suspect]
     Route: 048
  4. LORAZEPAM [Suspect]
     Route: 048
  5. HYDROMORPHONE [Suspect]
     Route: 048
  6. GABAPENTIN [Suspect]
     Route: 048
  7. ZOLPIDEM [Suspect]
     Route: 048
  8. MIRTAZAPINE [Suspect]
     Route: 048
  9. DIPHENHYDRAMINE [Suspect]
     Route: 048
  10. DEXTROMETHORPHAN [Suspect]
     Route: 048
  11. PROMETHAZINE [Suspect]
     Route: 048
  12. FLUOXETINE [Suspect]
     Route: 048

REACTIONS (2)
  - Drug abuse [Fatal]
  - Cardio-respiratory arrest [Fatal]
